FAERS Safety Report 8972815 (Version 1)
Quarter: 2012Q4

REPORT INFORMATION
  Report Type: 
  Country: LB (occurrence: LB)
  Receive Date: 20121219
  Receipt Date: 20121219
  Transmission Date: 20130627
  Serious: Yes (Hospitalization)
  Sender: FDA-Public Use
  Company Number: LB-BIOGENIDEC-2012BI057590

PATIENT
  Sex: Female
  Weight: 36 kg

DRUGS (1)
  1. TYSABRI [Suspect]
     Indication: RELAPSING-REMITTING MULTIPLE SCLEROSIS
     Route: 042
     Dates: start: 20120516, end: 20121016

REACTIONS (2)
  - Eyelid infection [Unknown]
  - Neutropenia [Unknown]
